FAERS Safety Report 25550336 (Version 1)
Quarter: 2025Q3

REPORT INFORMATION
  Report Type: Spontaneous
  Country: IN (occurrence: IN)
  Receive Date: 20250714
  Receipt Date: 20250714
  Transmission Date: 20251021
  Serious: Yes (Other)
  Sender: PFIZER
  Company Number: IN-PFIZER INC-PV202500081215

PATIENT
  Age: 67 Year
  Sex: Male

DRUGS (4)
  1. LORLATINIB [Suspect]
     Active Substance: LORLATINIB
     Dosage: 100 MG, 1X/DAY
     Route: 048
  2. LORLATINIB [Suspect]
     Active Substance: LORLATINIB
     Dosage: 50 MG, 1X/DAY
     Route: 048
  3. CALCIUM [Concomitant]
     Active Substance: CALCIUM
  4. CALCIROL [COLECALCIFEROL] [Concomitant]
     Dosage: 60000 IU/G, MONTHLY

REACTIONS (1)
  - Cataract [Unknown]
